FAERS Safety Report 10170867 (Version 1)
Quarter: 2014Q2

REPORT INFORMATION
  Report Type: Spontaneous
  Country: GB (occurrence: None)
  Receive Date: 20140512
  Receipt Date: 20140512
  Transmission Date: 20141212
  Serious: Yes (Death, Other)
  Sender: FDA-Public Use
  Company Number: 2014GB010440

PATIENT
  Age: 42 Year
  Sex: Female

DRUGS (6)
  1. ALOXI [Suspect]
     Indication: PROPHYLAXIS OF NAUSEA AND VOMITING
     Route: 042
     Dates: start: 20140207
  2. ABRAXANE [Suspect]
     Indication: BREAST CANCER
     Route: 041
     Dates: start: 20140207
  3. SODIUM CHLORIDE [Suspect]
     Indication: BREAST CANCER
     Route: 042
     Dates: start: 20140207
  4. PEGFILGRASTIM [Suspect]
     Route: 058
     Dates: start: 20140208
  5. FLUCONAZOLE [Suspect]
     Indication: ORAL CANDIDIASIS
     Route: 048
     Dates: start: 20140213, end: 20140213
  6. DOMPERIDONE [Suspect]
     Indication: PROPHYLAXIS OF NAUSEA AND VOMITING
     Route: 048

REACTIONS (6)
  - Pain in extremity [None]
  - Mucosal inflammation [None]
  - Hypophagia [None]
  - Oropharyngeal pain [None]
  - Oral candidiasis [None]
  - Renal failure [None]
